FAERS Safety Report 9554016 (Version 1)
Quarter: 2013Q3

REPORT INFORMATION
  Report Type: Spontaneous
  Country: HR (occurrence: HR)
  Receive Date: 20130925
  Receipt Date: 20130925
  Transmission Date: 20140515
  Serious: Yes (Other)
  Sender: FDA-Public Use
  Company Number: PHHY2013HR105881

PATIENT
  Age: 23 Year
  Sex: Female

DRUGS (1)
  1. LINDYNETTE [Suspect]
     Indication: MENSTRUATION IRREGULAR
     Dosage: 1 DF, QD
     Route: 048

REACTIONS (1)
  - Capillary disorder [Unknown]
